FAERS Safety Report 6609467-1 (Version None)
Quarter: 2010Q1

REPORT INFORMATION
  Report Type: 
  Country: None (occurrence: None)
  Receive Date: 20100302
  Receipt Date: 20100217
  Transmission Date: 20100710
  Serious: Yes (Death)
  Sender: FDA-Public Use
  Company Number: GB-BRISTOL-MYERS SQUIBB COMPANY-14687867

PATIENT
  Sex: Male

DRUGS (2)
  1. REYATAZ [Suspect]
  2. RITONAVIR [Suspect]
     Dosage: RITONAVIR SOFT GELATIN CAPSULES

REACTIONS (1)
  - NEPHROLITHIASIS [None]
